FAERS Safety Report 8266183-0 (Version None)
Quarter: 2012Q2

REPORT INFORMATION
  Report Type: 
  Country: None (occurrence: None)
  Receive Date: 20120406
  Receipt Date: 20120403
  Transmission Date: 20120825
  Serious: Yes (Death)
  Sender: FDA-Public Use
  Company Number: JP-PFIZER INC-2012084415

PATIENT

DRUGS (1)
  1. RHEUMATREX [Suspect]

REACTIONS (1)
  - PNEUMOTHORAX [None]
